FAERS Safety Report 4888598-0 (Version None)
Quarter: 2005Q4

REPORT INFORMATION
  Report Type: 
  Country: None (occurrence: None)
  Receive Date: 20051215
  Receipt Date: 20041202
  Transmission Date: 20060501
  Serious: Yes (Other)
  Sender: FDA-Public Use
  Company Number: 2004107942

PATIENT
  Sex: Male
  Weight: 77.1115 kg

DRUGS (3)
  1. BEXTRA [Suspect]
     Indication: ARTHRITIS
     Dosage: 20MG (10 MG, 2 IN 1 D) ORAL
     Route: 048
     Dates: end: 20040101
  2. PROPACET 100 [Concomitant]
  3. DOXAZOSIN MESYLATE [Concomitant]

REACTIONS (4)
  - RASH PUSTULAR [None]
  - RENAL PAIN [None]
  - SCAR [None]
  - SKIN INFECTION [None]
